FAERS Safety Report 8902050 (Version 2)
Quarter: 2012Q4

REPORT INFORMATION
  Report Type: 
  Country: CO (occurrence: CO)
  Receive Date: 20121112
  Receipt Date: 20121126
  Transmission Date: 20130627
  Serious: Yes (Hospitalization, Other)
  Sender: FDA-Public Use
  Company Number: CO-ELI_LILLY_AND_COMPANY-CO201211000612

PATIENT
  Age: 60 Year
  Sex: Female

DRUGS (4)
  1. HUMALOG 25% LISPRO, 75% NPL [Suspect]
     Indication: TYPE 2 DIABETES MELLITUS
     Dosage: 25 u, tid
     Route: 058
     Dates: start: 20120410
  2. HUMALOG 50% LISPRO, 50% NPL [Suspect]
     Indication: TYPE 2 DIABETES MELLITUS
     Dosage: 20 u, tid
     Route: 058
  3. ENALAPRIL [Concomitant]
     Dosage: 20 mg, bid
  4. INSULIN [Concomitant]

REACTIONS (3)
  - Renal tuberculosis [Recovering/Resolving]
  - Haematuria [Recovering/Resolving]
  - Hyperglycaemia [Recovering/Resolving]
